FAERS Safety Report 8058693-6 (Version None)
Quarter: 2012Q1

REPORT INFORMATION
  Report Type: 
  Country: None (occurrence: None)
  Receive Date: 20120120
  Receipt Date: 20120117
  Transmission Date: 20120608
  Serious: Yes (Other)
  Sender: FDA-Public Use
  Company Number: US-PFIZER INC-2011278113

PATIENT
  Sex: Female

DRUGS (4)
  1. FOSAMAX [Concomitant]
     Dosage: 10 MG, UNK
  2. ACCUPRIL [Suspect]
     Indication: HYPERTENSION
     Dosage: 10 MG, DAILY
     Route: 048
     Dates: end: 20111101
  3. LIPITOR [Concomitant]
     Dosage: 10 MG, 1X/DAY
  4. HYDROCHLOROTHIAZIDE [Concomitant]
     Dosage: 25 MG, 1X/DAY

REACTIONS (1)
  - ANGIOEDEMA [None]
